FAERS Safety Report 19372444 (Version 1)
Quarter: 2021Q2

REPORT INFORMATION
  Report Type: Report from Study
  Country: US (occurrence: US)
  Receive Date: 20210604
  Receipt Date: 20210604
  Transmission Date: 20210717
  Serious: No
  Sender: FDA-Public Use
  Company Number: NVSC2021US121728

PATIENT
  Sex: Male

DRUGS (1)
  1. ZOLGENSMA [Suspect]
     Active Substance: ONASEMNOGENE ABEPARVOVEC-XIOI
     Indication: SPINAL MUSCULAR ATROPHY
     Dosage: 1.1 MG/KG, ONCE/SINGLE (1.1X10/14TH VG/ KG)
     Route: 042
     Dates: start: 20210513, end: 20210513

REACTIONS (2)
  - Irritability [Unknown]
  - Abdominal discomfort [Unknown]
